FAERS Safety Report 15387623 (Version 1)
Quarter: 2018Q3

REPORT INFORMATION
  Report Type: Report from Study
  Country: US (occurrence: US)
  Receive Date: 20180914
  Receipt Date: 20180914
  Transmission Date: 20181010
  Serious: Yes (Hospitalization, Other)
  Sender: FDA-Public Use
  Company Number: US-ACTELION-A-NJ2017-162059

PATIENT
  Age: 45 Year
  Sex: Male
  Weight: 170.7 kg

DRUGS (5)
  1. VELETRI [Suspect]
     Active Substance: EPOPROSTENOL
     Indication: PULMONARY ARTERIAL HYPERTENSION
     Dosage: 6 NG/KG, PER MIN
     Route: 042
  2. VELETRI [Suspect]
     Active Substance: EPOPROSTENOL
     Dosage: 35 NG/KG, PER MIN
     Route: 042
  3. LETAIRIS [Suspect]
     Active Substance: AMBRISENTAN
     Indication: PRODUCT USED FOR UNKNOWN INDICATION
     Dosage: UNK
     Route: 065
  4. WARFARIN [Concomitant]
     Active Substance: WARFARIN
  5. ADCIRCA [Concomitant]
     Active Substance: TADALAFIL

REACTIONS (23)
  - Polycythaemia vera [Unknown]
  - Faeces soft [Unknown]
  - Rheumatoid arthritis [Unknown]
  - Peripheral swelling [Unknown]
  - Nasal congestion [Unknown]
  - Diarrhoea [Unknown]
  - Device alarm issue [Unknown]
  - Flank pain [Unknown]
  - Flushing [Unknown]
  - Dizziness [Unknown]
  - Arthralgia [Unknown]
  - Pain in jaw [Unknown]
  - Fluid retention [Unknown]
  - Dyspnoea exertional [Unknown]
  - Device occlusion [Unknown]
  - Productive cough [Unknown]
  - Erythema [Unknown]
  - Drug dose omission [Unknown]
  - Nausea [Unknown]
  - Pain in extremity [Unknown]
  - Headache [Unknown]
  - Dyspnoea [Unknown]
  - Device issue [Unknown]

NARRATIVE: CASE EVENT DATE: 20180816
